FAERS Safety Report 7441763-0 (Version None)
Quarter: 2011Q2

REPORT INFORMATION
  Report Type: 
  Country: None (occurrence: None)
  Receive Date: 20110428
  Receipt Date: 20110425
  Transmission Date: 20111010
  Serious: Yes (Hospitalization)
  Sender: FDA-Public Use
  Company Number: US-BRISTOL-MYERS SQUIBB COMPANY-15522196

PATIENT
  Age: 4 Decade
  Sex: Female

DRUGS (2)
  1. CYMBALTA [Suspect]
  2. ABILIFY [Suspect]
     Route: 048

REACTIONS (1)
  - SEROTONIN SYNDROME [None]
